FAERS Safety Report 21411859 (Version 2)
Quarter: 2023Q1

REPORT INFORMATION
  Report Type: Spontaneous
  Country: US (occurrence: None)
  Receive Date: 20221005
  Receipt Date: 20230111
  Transmission Date: 20230417
  Serious: Yes (Other)
  Sender: FDA-Public Use
  Company Number: 2022A333296

PATIENT
  Age: 81 Year
  Sex: Female
  Weight: 87.1 kg

DRUGS (72)
  1. PRILOSEC [Suspect]
     Active Substance: OMEPRAZOLE MAGNESIUM
     Indication: Gastrooesophageal reflux disease
     Route: 048
     Dates: start: 2009
  2. PRILOSEC [Suspect]
     Active Substance: OMEPRAZOLE MAGNESIUM
     Indication: Gastrooesophageal reflux disease
     Dosage: GENERIC
     Route: 065
     Dates: start: 200912, end: 201003
  3. PRILOSEC [Suspect]
     Active Substance: OMEPRAZOLE MAGNESIUM
     Indication: Gastrooesophageal reflux disease
     Dosage: GENERIC
     Route: 065
     Dates: start: 201004, end: 201005
  4. PRILOSEC [Suspect]
     Active Substance: OMEPRAZOLE MAGNESIUM
     Indication: Gastrooesophageal reflux disease
     Dosage: GENERIC
     Route: 065
     Dates: start: 201009
  5. PRILOSEC [Suspect]
     Active Substance: OMEPRAZOLE MAGNESIUM
     Indication: Gastrooesophageal reflux disease
     Dosage: GENERIC
     Route: 065
     Dates: start: 201209
  6. PRILOSEC [Suspect]
     Active Substance: OMEPRAZOLE MAGNESIUM
     Indication: Gastrooesophageal reflux disease
     Dosage: GENERIC
     Route: 065
     Dates: start: 201212
  7. PREVACID [Suspect]
     Active Substance: LANSOPRAZOLE
     Indication: Gastrooesophageal reflux disease
     Route: 065
     Dates: start: 200709, end: 200712
  8. PREVACID [Suspect]
     Active Substance: LANSOPRAZOLE
     Indication: Gastrooesophageal reflux disease
     Route: 065
     Dates: start: 200803, end: 200904
  9. PREVACID [Suspect]
     Active Substance: LANSOPRAZOLE
     Indication: Gastrooesophageal reflux disease
     Dosage: GENERIC
     Route: 065
     Dates: start: 201004, end: 201006
  10. ONDANSETRON [Concomitant]
     Active Substance: ONDANSETRON
     Indication: Nausea
     Dates: start: 2015
  11. LISINOPRIL [Concomitant]
     Active Substance: LISINOPRIL
     Indication: Hypertension
     Dates: start: 2015
  12. ELIQUIS [Concomitant]
     Active Substance: APIXABAN
     Indication: Thrombosis
     Dates: start: 2017
  13. ISOSORBIDE [Concomitant]
     Active Substance: ISOSORBIDE
     Indication: Chest pain
     Dates: start: 2015
  14. DILTIAZEM [Concomitant]
     Active Substance: DILTIAZEM
     Indication: Chest pain
     Dates: start: 2017
  15. ACETAMINAPHEN [Concomitant]
     Indication: Pain
     Dates: start: 2016
  16. NAPROXEN [Concomitant]
     Active Substance: NAPROXEN
     Indication: Pain
     Dates: start: 2015
  17. CRESTOR [Concomitant]
     Active Substance: ROSUVASTATIN CALCIUM
  18. DOXYCYCLINE [Concomitant]
     Active Substance: DOXYCYCLINE
  19. RELION [Concomitant]
  20. CHLORTHALIDONE [Concomitant]
     Active Substance: CHLORTHALIDONE
  21. PREMARIN [Concomitant]
     Active Substance: ESTROGENS, CONJUGATED
  22. METOCLOPRAMIDE [Concomitant]
     Active Substance: METOCLOPRAMIDE
  23. METFORMIN [Concomitant]
     Active Substance: METFORMIN HYDROCHLORIDE
  24. WELLBUTRIN [Concomitant]
     Active Substance: BUPROPION HYDROCHLORIDE
  25. ATORVASTATIN [Concomitant]
     Active Substance: ATORVASTATIN
  26. LEXAPRO [Concomitant]
     Active Substance: ESCITALOPRAM OXALATE
  27. LEVOTHYROXINE [Concomitant]
     Active Substance: LEVOTHYROXINE
  28. COREG [Concomitant]
     Active Substance: CARVEDILOL
  29. TYLENOL [Concomitant]
     Active Substance: ACETAMINOPHEN
  30. GABAPENTIN [Concomitant]
     Active Substance: GABAPENTIN
  31. MECLIZINE [Concomitant]
     Active Substance: MECLIZINE HYDROCHLORIDE
  32. CLOBETASOL [Concomitant]
     Active Substance: CLOBETASOL
  33. DONEPEZIL HYDROCHLORIDE [Concomitant]
     Active Substance: DONEPEZIL HYDROCHLORIDE
  34. SULFAMETHOXAZOLE [Concomitant]
     Active Substance: SULFAMETHOXAZOLE
  35. FLUCONAZOLE [Concomitant]
     Active Substance: FLUCONAZOLE
  36. OXYBUTYNIN [Concomitant]
     Active Substance: OXYBUTYNIN
  37. NITROFURANTOIN [Concomitant]
     Active Substance: NITROFURANTOIN
  38. SYNTHROID [Concomitant]
     Active Substance: LEVOTHYROXINE SODIUM
  39. AMPICILLIN [Concomitant]
     Active Substance: AMPICILLIN
  40. CEPHALEXIN [Concomitant]
     Active Substance: CEPHALEXIN
  41. PROMETHAZINE [Concomitant]
     Active Substance: PROMETHAZINE HYDROCHLORIDE
  42. GLUCAGEN [Concomitant]
     Active Substance: GLUCAGON HYDROCHLORIDE
  43. NYSTATIN [Concomitant]
     Active Substance: NYSTATIN
  44. RETIN-A [Concomitant]
     Active Substance: TRETINOIN
  45. RELION [Concomitant]
  46. FOLTRIN [Concomitant]
  47. CETIRIZINE HYDROCHLORIDE [Concomitant]
     Active Substance: CETIRIZINE HYDROCHLORIDE
  48. FOLIC ACID [Concomitant]
     Active Substance: FOLIC ACID
  49. AMMONIUM CHLORIDE\DEXTROMETHORPHAN\SODIUM CITRATE [Concomitant]
     Active Substance: AMMONIUM CHLORIDE\DEXTROMETHORPHAN\SODIUM CITRATE
  50. MELOXICAM [Concomitant]
     Active Substance: MELOXICAM
  51. PAROXETINE HYDROCHLORIDE [Concomitant]
     Active Substance: PAROXETINE HYDROCHLORIDE
  52. LORATADINE [Concomitant]
     Active Substance: LORATADINE
  53. COLLAGENASE SANTYL [Concomitant]
     Active Substance: COLLAGENASE CLOSTRIDIUM HISTOLYTICUM
  54. VITAMINS [Concomitant]
     Active Substance: VITAMINS
  55. METANX [Concomitant]
     Active Substance: LEVOMEFOLATE CALCIUM\METHYLCOBALAMIN\PYRIDOXAL PHOSPHATE ANHYDROUS
  56. SILVADENE [Concomitant]
     Active Substance: SILVER SULFADIAZINE
  57. MAGNESIUM SULFATE [Concomitant]
     Active Substance: MAGNESIUM SULFATE
  58. MORPHINE [Concomitant]
     Active Substance: MORPHINE
  59. ROCEPHIN [Concomitant]
     Active Substance: CEFTRIAXONE SODIUM
  60. MEDROL [Concomitant]
     Active Substance: METHYLPREDNISOLONE
  61. LISINOPRIL AND HYDROCHLOROTHIAZIDE [Concomitant]
     Active Substance: HYDROCHLOROTHIAZIDE\LISINOPRIL
  62. BACTRIM [Concomitant]
     Active Substance: SULFAMETHOXAZOLE\TRIMETHOPRIM
  63. CLINDAMYCIN [Concomitant]
     Active Substance: CLINDAMYCIN
  64. HUMALOG [Concomitant]
     Active Substance: INSULIN LISPRO
  65. IMDUR [Concomitant]
     Active Substance: ISOSORBIDE MONONITRATE
  66. SPIRONOLACTONE [Concomitant]
     Active Substance: SPIRONOLACTONE
  67. VITAMIN D3 [Concomitant]
     Active Substance: CHOLECALCIFEROL
  68. NITROLINGUAL [Concomitant]
     Active Substance: NITROGLYCERIN
  69. LACTIC ACID [Concomitant]
     Active Substance: LACTIC ACID
  70. DEXTROSE [Concomitant]
     Active Substance: DEXTROSE
  71. MELATONIN [Concomitant]
     Active Substance: MELATONIN
  72. SODIUM CHLORIDE [Concomitant]
     Active Substance: SODIUM CHLORIDE

REACTIONS (5)
  - Chronic kidney disease [Not Recovered/Not Resolved]
  - Acute kidney injury [Unknown]
  - Renal failure [Unknown]
  - Renal tubular necrosis [Unknown]
  - Nephrogenic anaemia [Unknown]

NARRATIVE: CASE EVENT DATE: 20150101
